FAERS Safety Report 6330021-3 (Version None)
Quarter: 2009Q3

REPORT INFORMATION
  Report Type: 
  Country: None (occurrence: None)
  Receive Date: 20090825
  Receipt Date: 20090810
  Transmission Date: 20100115
  Serious: Yes (Other)
  Sender: FDA-Public Use
  Company Number: 2009SP019326

PATIENT
  Sex: Female

DRUGS (1)
  1. MIRCETTE [Suspect]
     Dosage: PO
     Route: 048

REACTIONS (1)
  - BREAST CANCER FEMALE [None]
